FAERS Safety Report 7456002-4 (Version None)
Quarter: 2011Q2

REPORT INFORMATION
  Report Type: 
  Country: None (occurrence: None)
  Receive Date: 20110503
  Receipt Date: 20110426
  Transmission Date: 20111010
  Serious: Yes (Disabling)
  Sender: FDA-Public Use
  Company Number: US-MERCK-1104USA03727

PATIENT
  Age: 48 Year
  Sex: Male

DRUGS (6)
  1. AZILECT [Concomitant]
     Route: 065
  2. SINEMET [Suspect]
     Indication: PARKINSON'S DISEASE
     Route: 048
     Dates: start: 20110101
  3. MIRAPEX [Concomitant]
     Route: 065
  4. WELLBUTRIN XL [Concomitant]
     Route: 065
  5. SINEMET [Suspect]
     Route: 048
     Dates: start: 19930101, end: 20110101
  6. SINEMET [Concomitant]
     Dosage: GENERIC
     Route: 048

REACTIONS (2)
  - PARKINSONISM [None]
  - OVERDOSE [None]
